FAERS Safety Report 5324873-3 (Version None)
Quarter: 2007Q2

REPORT INFORMATION
  Report Type: 
  Country: None (occurrence: None)
  Receive Date: 20070515
  Receipt Date: 20070504
  Transmission Date: 20071010
  Serious: Yes (Hospitalization)
  Sender: FDA-Public Use
  Company Number: AU-BRISTOL-MYERS SQUIBB COMPANY-13778261

PATIENT
  Age: 73 Year

DRUGS (9)
  1. METFORMIN HCL [Suspect]
     Route: 048
     Dates: start: 20060425, end: 20060502
  2. ATENOLOL [Suspect]
     Route: 048
     Dates: start: 20050926, end: 20060502
  3. CLOMIPRAMINE HCL [Suspect]
     Route: 048
     Dates: start: 20051118, end: 20060502
  4. OGEN [Suspect]
     Dates: start: 20060316, end: 20060502
  5. OLANZAPINE [Suspect]
     Indication: INTERMITTENT EXPLOSIVE DISORDER
     Dates: start: 20050926, end: 20060502
  6. EPILIM [Suspect]
     Indication: INTERMITTENT EXPLOSIVE DISORDER
     Dates: start: 20050626, end: 20060502
  7. FUROSEMIDE [Suspect]
     Indication: OEDEMA
     Dates: start: 20050926, end: 20060502
  8. ALDACTONE [Suspect]
     Indication: OEDEMA
     Route: 048
     Dates: start: 20050926, end: 20060502
  9. SEROQUEL [Suspect]
     Indication: INTERMITTENT EXPLOSIVE DISORDER
     Route: 048
     Dates: start: 20050926, end: 20060502

REACTIONS (6)
  - COGNITIVE DISORDER [None]
  - DYSPHAGIA [None]
  - HYPERGLYCAEMIA [None]
  - MOBILITY DECREASED [None]
  - OEDEMA [None]
  - PYREXIA [None]
